FAERS Safety Report 7386188-1 (Version None)
Quarter: 2011Q1

REPORT INFORMATION
  Report Type: 
  Country: None (occurrence: None)
  Receive Date: 20110329
  Receipt Date: 20110329
  Transmission Date: 20110831
  Serious: Yes (Other)
  Sender: FDA-Public Use
  Company Number: None

PATIENT
  Age: 52 Year
  Sex: Female
  Weight: 81.6475 kg

DRUGS (2)
  1. CYMBALTA [Suspect]
     Indication: DEPRESSION
     Dosage: 30MG TWICE A DAY PO
     Route: 048
     Dates: start: 20071001, end: 20110401
  2. CYMBALTA [Suspect]
     Indication: NEURALGIA
     Dosage: 30MG TWICE A DAY PO
     Route: 048
     Dates: start: 20071001, end: 20110401

REACTIONS (4)
  - FATIGUE [None]
  - FEELING ABNORMAL [None]
  - PARAESTHESIA [None]
  - DRUG DEPENDENCE [None]
